FAERS Safety Report 9390110 (Version 2)
Quarter: 2013Q3

REPORT INFORMATION
  Report Type: Spontaneous
  Country: US (occurrence: US)
  Receive Date: 20130708
  Receipt Date: 20130814
  Transmission Date: 20140515
  Serious: Yes (Other)
  Sender: FDA-Public Use
  Company Number: US-AMGEN-USASP2013042426

PATIENT
  Age: 72 Year
  Sex: Female
  Weight: 79.7 kg

DRUGS (1)
  1. ENBREL [Suspect]
     Indication: RHEUMATOID ARTHRITIS
     Dosage: 50 MG, QWK
     Route: 058

REACTIONS (8)
  - Diverticulum [Unknown]
  - Glucose tolerance impaired [Unknown]
  - Hypertension [Unknown]
  - Blood cholesterol increased [Unknown]
  - Anxiety [Unknown]
  - Osteoarthritis [Unknown]
  - Osteoporosis [Unknown]
  - Bronchitis [Recovering/Resolving]
